FAERS Safety Report 4666199-7 (Version None)
Quarter: 2005Q2

REPORT INFORMATION
  Report Type: 
  Country: None (occurrence: None)
  Receive Date: 20050518
  Receipt Date: 20050509
  Transmission Date: 20051028
  Serious: Yes (Hospitalization, Other)
  Sender: FDA-Public Use
  Company Number: 2005-02-0168

PATIENT
  Age: 58 Year
  Sex: Male
  Weight: 80 kg

DRUGS (2)
  1. PEG-INTRON [Suspect]
     Indication: HEPATITIS C
     Dosage: 100 MCG QW SUBCUTANEOUS
     Route: 058
     Dates: start: 20050107, end: 20050128
  2. REBETOL [Suspect]
     Indication: HEPATITIS C
     Dosage: 400 MG ORAL
     Route: 048
     Dates: start: 20050107, end: 20050131

REACTIONS (5)
  - AMNESIA [None]
  - CEREBRAL HAEMORRHAGE [None]
  - THROMBOTIC STROKE [None]
  - TOXIC INDUCED ENCEPHALOPATHY [None]
  - VASCULITIS CEREBRAL [None]
